FAERS Safety Report 12590486 (Version 2)
Quarter: 2016Q3

REPORT INFORMATION
  Report Type: Report from Study
  Country: US (occurrence: US)
  Receive Date: 20160725
  Receipt Date: 20160907
  Transmission Date: 20161109
  Serious: Yes (Hospitalization)
  Sender: FDA-Public Use
  Company Number: US-BIOGEN-2014BI104121

PATIENT
  Age: 61 Year
  Sex: Female

DRUGS (6)
  1. AVONEX [Suspect]
     Active Substance: INTERFERON BETA-1A
     Route: 030
     Dates: start: 20080429
  2. ACETAMINOPHEN. [Concomitant]
     Active Substance: ACETAMINOPHEN
     Indication: PRODUCT USED FOR UNKNOWN INDICATION
     Route: 065
  3. DETROL LA [Concomitant]
     Active Substance: TOLTERODINE TARTRATE
     Indication: PRODUCT USED FOR UNKNOWN INDICATION
     Route: 065
  4. TRAMADOL. [Concomitant]
     Active Substance: TRAMADOL
     Indication: PRODUCT USED FOR UNKNOWN INDICATION
     Route: 065
  5. AVONEX [Suspect]
     Active Substance: INTERFERON BETA-1A
     Indication: MULTIPLE SCLEROSIS
     Route: 030
     Dates: start: 20080425
  6. ENALAPRIL MALEATE. [Concomitant]
     Active Substance: ENALAPRIL MALEATE
     Indication: PRODUCT USED FOR UNKNOWN INDICATION
     Route: 065

REACTIONS (16)
  - Memory impairment [Recovered/Resolved]
  - Rash [Unknown]
  - Confusional state [Recovered/Resolved with Sequelae]
  - Bladder disorder [Recovered/Resolved]
  - Coccydynia [Unknown]
  - Depression [Recovered/Resolved]
  - Tremor [Recovered/Resolved with Sequelae]
  - Anxiety [Not Recovered/Not Resolved]
  - Stress [Recovered/Resolved]
  - Hemianaesthesia [Unknown]
  - Gastrointestinal disorder [Recovered/Resolved]
  - Panic reaction [Recovered/Resolved]
  - Hypoaesthesia [Recovered/Resolved]
  - Hysterectomy [Recovered/Resolved]
  - Cataract [Unknown]
  - Intervertebral disc protrusion [Recovered/Resolved]

NARRATIVE: CASE EVENT DATE: 201403
